FAERS Safety Report 8596050-4 (Version None)
Quarter: 2012Q3

REPORT INFORMATION
  Report Type: 
  Country: None (occurrence: None)
  Receive Date: 20120801
  Receipt Date: 20120720
  Transmission Date: 20120928
  Serious: Yes (Hospitalization)
  Sender: FDA-Public Use
  Company Number: JP-2012-15740

PATIENT
  Age: 87 Year
  Sex: Male

DRUGS (3)
  1. PLETAL [Suspect]
     Dosage: 200 MG MILLIGRAM(S), DAILY DOSE, ORAL
     Route: 048
  2. WARFARIN SODIUM [Suspect]
     Dosage: 2 MG MILLIGRAM(S), DAILY DOSE, ORAL
     Route: 048
  3. NICORANDIL (NICORANDIL) TABLET [Concomitant]

REACTIONS (7)
  - INTERNATIONAL NORMALISED RATIO INCREASED [None]
  - SHOCK HAEMORRHAGIC [None]
  - ANAEMIA [None]
  - EXTRAVASATION [None]
  - TREATMENT NONCOMPLIANCE [None]
  - LOWER GASTROINTESTINAL HAEMORRHAGE [None]
  - COLON CANCER [None]
